FAERS Safety Report 5928074-7 (Version None)
Quarter: 2008Q4

REPORT INFORMATION
  Report Type: 
  Country: None (occurrence: None)
  Receive Date: 20081023
  Receipt Date: 20081020
  Transmission Date: 20090506
  Serious: Yes (Hospitalization)
  Sender: FDA-Public Use
  Company Number: B0528578A

PATIENT
  Age: 3 Year
  Sex: Female
  Weight: 14.3 kg

DRUGS (8)
  1. CLAVAMOX [Suspect]
     Indication: OTITIS MEDIA
     Dosage: 1.05G TWICE PER DAY
     Route: 048
     Dates: start: 20080625, end: 20080707
  2. MUCODYNE [Concomitant]
     Indication: OTITIS MEDIA
     Dosage: 1.2G PER DAY
     Route: 048
     Dates: start: 20080530, end: 20080707
  3. ZADITEN [Concomitant]
     Indication: OTITIS MEDIA
     Dosage: 1.2G PER DAY
     Route: 048
     Dates: start: 20080530, end: 20080707
  4. CLARITHROMYCIN [Concomitant]
     Route: 048
     Dates: end: 20080624
  5. ENTERONON-R [Concomitant]
     Indication: OTITIS MEDIA
     Dosage: 1.35G PER DAY
     Route: 048
     Dates: start: 20080530, end: 20080707
  6. ALBUMIN TANNATE [Concomitant]
     Indication: OTITIS MEDIA
     Dosage: .9G PER DAY
     Route: 048
     Dates: start: 20080530, end: 20080707
  7. ADSORBIN [Concomitant]
     Indication: OTITIS MEDIA
     Dosage: .9G PER DAY
     Route: 048
     Dates: start: 20080530, end: 20080707
  8. CLARITHROMYCIN [Concomitant]
     Indication: OTITIS MEDIA
     Route: 048
     Dates: end: 20080624

REACTIONS (13)
  - BLOOD ALKALINE PHOSPHATASE INCREASED [None]
  - BLOOD CREATININE DECREASED [None]
  - BLOOD LACTATE DEHYDROGENASE INCREASED [None]
  - C-REACTIVE PROTEIN INCREASED [None]
  - DRUG ERUPTION [None]
  - ERYTHEMA [None]
  - LYMPHOCYTE COUNT INCREASED [None]
  - MONOCYTE COUNT DECREASED [None]
  - NEUTROPHIL COUNT DECREASED [None]
  - PYREXIA [None]
  - RASH PAPULAR [None]
  - RED BLOOD CELL COUNT INCREASED [None]
  - TOXIC SKIN ERUPTION [None]
